FAERS Safety Report 8863800 (Version 1)
Quarter: 2012Q4

REPORT INFORMATION
  Report Type: 
  Country: US (occurrence: US)
  Receive Date: 20121024
  Receipt Date: 20121024
  Transmission Date: 20130627
  Serious: No
  Sender: FDA-Public Use
  Company Number: US-AMGEN-USASP2011064324

PATIENT
  Age: 52 Year
  Sex: Female
  Weight: 87.08 kg

DRUGS (9)
  1. ENBREL [Suspect]
     Indication: PRODUCT USED FOR UNKNOWN INDICATION
     Dosage: 50 mg, qwk
  2. IBUPROFEN [Concomitant]
     Dosage: 200 mg, UNK
  3. FOLIC ACID [Concomitant]
     Dosage: 1 mg, UNK
  4. FLAXSEED OIL [Concomitant]
  5. BENADRYL                           /00000402/ [Concomitant]
     Dosage: 25 mg, UNK
  6. CALCIUM D                          /00944201/ [Concomitant]
  7. VITAMIN C                          /00008001/ [Concomitant]
     Dosage: 1000 mg, UNK
  8. MULTIVITAMIN                       /00097801/ [Concomitant]
  9. IRON [Concomitant]
     Dosage: 325 mg, UNK

REACTIONS (1)
  - Menorrhagia [Unknown]
